FAERS Safety Report 9772574 (Version 1)
Quarter: 2013Q4

REPORT INFORMATION
  Report Type: Spontaneous
  Country: US (occurrence: US)
  Receive Date: 20131219
  Receipt Date: 20131219
  Transmission Date: 20140711
  Serious: Yes (Death, Hospitalization)
  Sender: FDA-Public Use
  Company Number: PHHY2013US145633

PATIENT
  Age: 53 Year
  Sex: Female

DRUGS (4)
  1. VANCOMYCIN [Suspect]
  2. MEROPENEM [Suspect]
  3. POSACONAZOLE [Suspect]
  4. AMPHOTERICIN B [Suspect]

REACTIONS (4)
  - Death [Fatal]
  - Pancytopenia [Unknown]
  - Pyrexia [Unknown]
  - Drug ineffective [Unknown]
